FAERS Safety Report 8264582-4 (Version None)
Quarter: 2012Q2

REPORT INFORMATION
  Report Type: 
  Country: None (occurrence: None)
  Receive Date: 20120404
  Receipt Date: 20120319
  Transmission Date: 20120825
  Serious: Yes (Death, Hospitalization, Other)
  Sender: FDA-Public Use
  Company Number: 1233605

PATIENT
  Sex: Female

DRUGS (3)
  1. DEPO-MEDROL [Suspect]
     Indication: LOCAL ANAESTHESIA
     Dates: start: 20100316, end: 20100316
  2. LIDOCAINE [Concomitant]
  3. BUPIVACAINE HCL [Suspect]
     Indication: LOCAL ANAESTHESIA
     Dates: start: 20100316, end: 20100316

REACTIONS (19)
  - CIRCULATORY COLLAPSE [None]
  - PULSELESS ELECTRICAL ACTIVITY [None]
  - RESPIRATORY FAILURE [None]
  - VENTRICULAR FIBRILLATION [None]
  - GRAND MAL CONVULSION [None]
  - DEPRESSED LEVEL OF CONSCIOUSNESS [None]
  - CIRCUMSTANCE OR INFORMATION CAPABLE OF LEADING TO MEDICATION ERROR [None]
  - HYPOTENSION [None]
  - SINUS TACHYCARDIA [None]
  - HYPOXIC-ISCHAEMIC ENCEPHALOPATHY [None]
  - RESPIRATORY ARREST [None]
  - TOXICITY TO VARIOUS AGENTS [None]
  - NERVOUS SYSTEM DISORDER [None]
  - INCORRECT ROUTE OF DRUG ADMINISTRATION [None]
  - CARDIAC ARREST [None]
  - UNRESPONSIVE TO STIMULI [None]
  - SINUS BRADYCARDIA [None]
  - VENTRICULAR TACHYCARDIA [None]
  - MEDICATION ERROR [None]
